FAERS Safety Report 10358752 (Version 2)
Quarter: 2014Q3

REPORT INFORMATION
  Report Type: Spontaneous
  Country: ES (occurrence: ES)
  Receive Date: 20140804
  Receipt Date: 20140804
  Transmission Date: 20150326
  Serious: Yes (Hospitalization)
  Sender: FDA-Public Use
  Company Number: US-ASTRAZENECA-2014SE26229

PATIENT
  Age: 5 Month
  Sex: Male

DRUGS (2)
  1. SYNAGIS [Suspect]
     Active Substance: PALIVIZUMAB
     Indication: ANTIVIRAL PROPHYLAXIS
     Dosage: THE BABY HAD RECEIVED TWO DOSES
     Route: 030
     Dates: start: 2013
  2. SYNAGIS [Suspect]
     Active Substance: PALIVIZUMAB
     Indication: BRONCHOPULMONARY DYSPLASIA
     Dosage: THE BABY HAD RECEIVED TWO DOSES
     Route: 030
     Dates: start: 2013

REACTIONS (2)
  - False positive investigation result [Unknown]
  - Bronchiolitis [Unknown]

NARRATIVE: CASE EVENT DATE: 201312
